FAERS Safety Report 14908496 (Version 3)
Quarter: 2024Q3

REPORT INFORMATION
  Report Type: Spontaneous
  Country: ZA (occurrence: ZA)
  Receive Date: 20180517
  Receipt Date: 20240823
  Transmission Date: 20241017
  Serious: Yes (Hospitalization, Other)
  Sender: GLENMARK
  Company Number: ZA-GLENMARK PHARMACEUTICALS-2018GMK035365

PATIENT

DRUGS (13)
  1. FLUCONAZOLE [Suspect]
     Active Substance: FLUCONAZOLE
     Indication: Cryptococcosis
     Dosage: 400 MG, QD, FOR 6 TO 12 MONTHS
     Route: 065
  2. FLUCONAZOLE [Suspect]
     Active Substance: FLUCONAZOLE
     Dosage: 200 MG, AFTER EACH DIALYSIS SESSION
     Route: 065
  3. TACROLIMUS [Suspect]
     Active Substance: TACROLIMUS
     Indication: Immunosuppressant drug therapy
     Dosage: TARGET SERUM TROUGH LEVEL 5-7 NG/ML, UNK
     Route: 065
  4. TACROLIMUS [Suspect]
     Active Substance: TACROLIMUS
     Dosage: TARGET TROUGH LEVEL OF 5 NG/ML, UNK
     Route: 065
  5. MYCOPHENOLATE MOFETIL [Suspect]
     Active Substance: MYCOPHENOLATE MOFETIL
     Indication: Immunosuppressant drug therapy
     Dosage: 1 GRAM, BID
     Route: 065
  6. MYCOPHENOLATE MOFETIL [Suspect]
     Active Substance: MYCOPHENOLATE MOFETIL
     Dosage: 500 MILLIGRAM, BID
     Route: 065
  7. PREDNISONE [Suspect]
     Active Substance: PREDNISONE
     Indication: Immunosuppressant drug therapy
     Dosage: 5 MILLIGRAM, OD
     Route: 065
  8. PREDNISONE [Suspect]
     Active Substance: PREDNISONE
     Dosage: 10 MILLIGRAM, OD
     Route: 065
  9. GANCICLOVIR [Concomitant]
     Active Substance: GANCICLOVIR
     Indication: Renal impairment
     Dosage: UNK
     Route: 042
     Dates: start: 2015
  10. INSULIN NOS [Concomitant]
     Active Substance: INSULIN NOS
     Indication: Diabetes mellitus
     Dosage: UNK
     Route: 065
     Dates: start: 2010
  11. METHYLPREDNISOLONE [Concomitant]
     Active Substance: METHYLPREDNISOLONE
     Indication: Renal impairment
     Dosage: 250 MILLIGRAM, OD
     Route: 065
     Dates: start: 2015
  12. METHYLPREDNISOLONE [Concomitant]
     Active Substance: METHYLPREDNISOLONE
     Dosage: 500 MILLIGRAM, OD
     Route: 065
     Dates: start: 2015
  13. VALGANCICLOVIR [Concomitant]
     Active Substance: VALGANCICLOVIR
     Indication: Renal impairment
     Dosage: UNK
     Route: 048
     Dates: start: 2015

REACTIONS (3)
  - Condition aggravated [Not Recovered/Not Resolved]
  - Cryptococcosis [Not Recovered/Not Resolved]
  - Therapy non-responder [Unknown]
